FAERS Safety Report 21576814 (Version 1)
Quarter: 2022Q4

REPORT INFORMATION
  Report Type: Spontaneous
  Country: US (occurrence: US)
  Receive Date: 20221110
  Receipt Date: 20221110
  Transmission Date: 20230113
  Serious: No
  Sender: FDA-Public Use
  Company Number: US-APOTEX-2022AP011049

PATIENT
  Sex: Male

DRUGS (1)
  1. FENTANYL TRANSDERMAL SYSTEM [Suspect]
     Active Substance: FENTANYL
     Indication: Product used for unknown indication
     Dosage: 1 DOSAGE FORM, Q.O.D. (1 PATCH EVERY 48 HOURS)
     Route: 065

REACTIONS (10)
  - Hypersomnia [Unknown]
  - Wrong technique in product usage process [Unknown]
  - Product physical issue [Unknown]
  - Product quality issue [Unknown]
  - Product adhesion issue [Unknown]
  - Dry mouth [Unknown]
  - Palpitations [Unknown]
  - Blood pressure increased [Unknown]
  - Asthenia [Unknown]
  - Somnolence [Unknown]
